FAERS Safety Report 16976690 (Version 1)
Quarter: 2019Q4

REPORT INFORMATION
  Report Type: Spontaneous
  Country: BA (occurrence: BA)
  Receive Date: 20191030
  Receipt Date: 20191030
  Transmission Date: 20200122
  Serious: Yes (Hospitalization, Other)
  Sender: FDA-Public Use
  Company Number: BA-PFIZER INC-2019462423

PATIENT
  Age: 80 Year
  Sex: Male

DRUGS (7)
  1. ALDACTONE [Suspect]
     Active Substance: SPIRONOLACTONE
     Dosage: 25 MG, 1X/DAY
  2. AMPRIL [Suspect]
     Active Substance: RAMIPRIL
     Dosage: 5 MG, 1X/DAY (IN THE MORNING)
  3. REDERGIN [Suspect]
     Active Substance: ERGOLOID MESYLATES
     Dosage: 1 DF, 2X/DAY
  4. LODIXAL [Suspect]
     Active Substance: VERAPAMIL HYDROCHLORIDE
     Dosage: 40 MG, 1X/DAY (ON DAY 2 WITH ALDACTONE)
  5. NOLPAZA [Suspect]
     Active Substance: PANTOPRAZOLE SODIUM
     Dosage: 20 MG, 1X/DAY (IN THE MORNING)
  6. NORVASC [Suspect]
     Active Substance: AMLODIPINE BESYLATE
     Dosage: 10 MG, 1X/DAY (IN THE EVENING)
  7. SINTROM [Suspect]
     Active Substance: ACENOCOUMAROL
     Dosage: 1 DF, PER SCHEME 1X1 ONE DAY, 1X1 / 2 SECOND DAY WITH INR MONITORING

REACTIONS (9)
  - Epistaxis [Unknown]
  - Asthenia [Unknown]
  - Contusion [Unknown]
  - Ventricular arrhythmia [Unknown]
  - Anaemia [Unknown]
  - Haemoptysis [Unknown]
  - International normalised ratio abnormal [Unknown]
  - Atrial fibrillation [Unknown]
  - Tachycardia [Unknown]
